FAERS Safety Report 18560753 (Version 2)
Quarter: 2020Q4

REPORT INFORMATION
  Report Type: Report from Study
  Country: US (occurrence: US)
  Receive Date: 20201130
  Receipt Date: 20201203
  Transmission Date: 20210114
  Serious: Yes (Other)
  Sender: FDA-Public Use
  Company Number: US-MYLANLABS-2020M1097165

PATIENT
  Sex: Female

DRUGS (2)
  1. GLATIRAMER ACETATE INJECTION [Suspect]
     Active Substance: GLATIRAMER ACETATE
     Indication: MULTIPLE SCLEROSIS
     Dosage: 40 MILLIGRAM, 3XW(3X PER WEEK)
     Route: 058
  2. MEMANTINE. [Concomitant]
     Active Substance: MEMANTINE
     Indication: CEREBRAL DISORDER
     Dosage: 10 MILLIGRAM, QD

REACTIONS (3)
  - Dementia [Unknown]
  - Mobility decreased [Unknown]
  - Therapeutic product effect decreased [Unknown]
